FAERS Safety Report 8236923 (Version 2)
Quarter: 2013Q1

REPORT INFORMATION
  Report Type: Spontaneous
  Country: JP (occurrence: None)
  Receive Date: 20111031
  Receipt Date: 20121025
  Transmission Date: 20140127
  Serious: Yes (Hospitalization)
  Sender: FDA-Public Use
  Company Number: 2011SP049988

PATIENT
  Age: 4 Year
  Sex: Female
  Weight: 18.4 kg

DRUGS (3)
  1. LORATADINE [Suspect]
     Indication: RHINITIS ALLERGIC
     Route: 048
     Dates: start: 20100413, end: 20111101
  2. LORATADINE [Suspect]
     Indication: ASTHMA
     Route: 048
     Dates: start: 20100413, end: 20111101
  3. MONTELUKAST SODIUM [Concomitant]
     Indication: ASTHMA
     Dosage: 4 MG;QD;PO
     Route: 048
     Dates: start: 20090804

REACTIONS (2)
  - Hepatitis acute [None]
  - Drug-induced liver injury [None]
